FAERS Safety Report 9844084 (Version 1)
Quarter: 2014Q1

REPORT INFORMATION
  Report Type: Spontaneous
  Country: FR (occurrence: FR)
  Receive Date: 20140127
  Receipt Date: 20140127
  Transmission Date: 20141002
  Serious: Yes (Hospitalization)
  Sender: FDA-Public Use
  Company Number: FR-ROCHE-1335452

PATIENT
  Age: 67 Year
  Sex: Female
  Weight: 68 kg

DRUGS (4)
  1. MABTHERA [Suspect]
     Indication: LYMPHOCYTIC LYMPHOMA
     Dosage: CYCLE 1
     Route: 065
     Dates: start: 2009
  2. MABTHERA [Suspect]
     Route: 065
     Dates: start: 2012
  3. MABTHERA [Suspect]
     Route: 042
     Dates: start: 20131217, end: 20131217
  4. LEVACT (FRANCE) [Suspect]
     Indication: LYMPHOCYTIC LYMPHOMA
     Route: 042
     Dates: start: 20131217, end: 20131218

REACTIONS (5)
  - Eyelid oedema [Recovered/Resolved]
  - Pyrexia [Recovered/Resolved]
  - Rash erythematous [Recovered/Resolved]
  - Pruritus [Recovered/Resolved]
  - Eosinophilia [Unknown]
